FAERS Safety Report 25388353 (Version 1)
Quarter: 2025Q2

REPORT INFORMATION
  Report Type: Spontaneous
  Country: AE (occurrence: AE)
  Receive Date: 20250603
  Receipt Date: 20250603
  Transmission Date: 20250716
  Serious: Yes (Other)
  Sender: ROCHE
  Company Number: AE-ROCHE-10000292512

PATIENT
  Age: 30 Year
  Sex: Female

DRUGS (8)
  1. CEFTRIAXONE [Suspect]
     Active Substance: CEFTRIAXONE
     Indication: Pyelonephritis
     Route: 065
  2. OSELTAMIVIR [Suspect]
     Active Substance: OSELTAMIVIR
     Indication: Pyrexia
     Route: 065
  3. AZITHROMYCIN [Concomitant]
     Active Substance: AZITHROMYCIN
     Indication: Pyrexia
  4. ACYCLOVIR [Concomitant]
     Active Substance: ACYCLOVIR
  5. GANCICLOVIR [Concomitant]
     Active Substance: GANCICLOVIR
     Route: 042
  6. DEXAMETHASONE [Concomitant]
     Active Substance: DEXAMETHASONE
  7. ROMIPLOSTIM [Concomitant]
     Active Substance: ROMIPLOSTIM
  8. VALGANCICLOVIR [Concomitant]
     Active Substance: VALGANCICLOVIR

REACTIONS (3)
  - Maternal exposure during pregnancy [Unknown]
  - Postpartum haemorrhage [Unknown]
  - Premature delivery [Unknown]
